FAERS Safety Report 6906467-9 (Version None)
Quarter: 2010Q3

REPORT INFORMATION
  Report Type: 
  Country: None (occurrence: None)
  Receive Date: 20100804
  Receipt Date: 20100723
  Transmission Date: 20110219
  Serious: Yes (Hospitalization)
  Sender: FDA-Public Use
  Company Number: US-ELI_LILLY_AND_COMPANY-US201007005685

PATIENT
  Sex: Female

DRUGS (13)
  1. GEMCITABINE HCL [Suspect]
     Indication: PANCREATIC CARCINOMA
     Dosage: 1000 MG/M2, UNK
     Dates: start: 20100617, end: 20100712
  2. PACLITAXEL [Suspect]
     Indication: PANCREATIC CARCINOMA
     Dosage: 125 MG/M2, UNK
     Dates: start: 20100617, end: 20100712
  3. METFORMIN HCL [Concomitant]
  4. CIPROFLOXACIN [Concomitant]
  5. CLOTRIMAZOLE [Concomitant]
  6. POTASSIUM CHLORIDE [Concomitant]
  7. COMPAZINE [Concomitant]
  8. GLYBURIDE [Concomitant]
  9. HYDROMORPHONE [Concomitant]
  10. VENTOLIN                                /SCH/ [Concomitant]
  11. OMEPRAZOLE [Concomitant]
  12. ADVAIR DISKUS 100/50 [Concomitant]
  13. FLUOXETINE [Concomitant]

REACTIONS (1)
  - DRUG TOXICITY [None]
